FAERS Safety Report 26110908 (Version 1)
Quarter: 2025Q4

REPORT INFORMATION
  Report Type: Spontaneous
  Country: TW (occurrence: TW)
  Receive Date: 20251202
  Receipt Date: 20251202
  Transmission Date: 20260117
  Serious: Yes (Life-Threatening, Hospitalization)
  Sender: ACCORD
  Company Number: TW-MLMSERVICE-20251110-PI708028-00050-1

PATIENT
  Age: 13 Month
  Sex: Male
  Weight: 9 kg

DRUGS (1)
  1. AMLODIPINE [Suspect]
     Active Substance: AMLODIPINE BESYLATE
     Indication: Hypertension
     Dosage: TITRATED UP TO 3.75 MG THREE TIMES PER DAY

REACTIONS (1)
  - Ascites [Recovered/Resolved]
